FAERS Safety Report 16433064 (Version 1)
Quarter: 2019Q2

REPORT INFORMATION
  Report Type: Spontaneous
  Country: US (occurrence: US)
  Receive Date: 20190614
  Receipt Date: 20190614
  Transmission Date: 20190711
  Serious: No
  Sender: FDA-Public Use
  Company Number: US-PFIZER INC-2019252019

PATIENT
  Age: 58 Year
  Sex: Female
  Weight: 99.34 kg

DRUGS (1)
  1. XANAX [Suspect]
     Active Substance: ALPRAZOLAM
     Indication: CLAUSTROPHOBIA
     Dosage: 2 DF, UNK (1 XANAX BEFORE SHE GOT THERE AND THEN TOOK 1 XANAX AFTER SHE GOT THERE)

REACTIONS (2)
  - Drug ineffective for unapproved indication [Unknown]
  - Off label use [Unknown]
